FAERS Safety Report 7972860-9 (Version None)
Quarter: 2011Q4

REPORT INFORMATION
  Report Type: 
  Country: None (occurrence: None)
  Receive Date: 20111209
  Receipt Date: 20110428
  Transmission Date: 20120403
  Serious: Yes (Other)
  Sender: FDA-Public Use
  Company Number: 54973

PATIENT
  Age: 2 Year
  Sex: Male

DRUGS (1)
  1. HYLAND'S ALLERGY RELIEF 4 KIDS [Suspect]
     Indication: HYPERSENSITIVITY
     Dosage: 2 TABS EVERY 15 MINS

REACTIONS (10)
  - CRYING [None]
  - DELIRIUM [None]
  - PYREXIA [None]
  - SWELLING FACE [None]
  - URTICARIA [None]
  - EYE PRURITUS [None]
  - PRURITUS [None]
  - RASH [None]
  - LACRIMATION INCREASED [None]
  - RHINORRHOEA [None]
